FAERS Safety Report 9455831 (Version 2)
Quarter: 2013Q3

REPORT INFORMATION
  Report Type: Spontaneous
  Country: US (occurrence: US)
  Receive Date: 20130813
  Receipt Date: 20130813
  Transmission Date: 20140515
  Serious: Yes (Hospitalization)
  Sender: FDA-Public Use
  Company Number: US-JNJFOC-20130803159

PATIENT
  Age: 38 Year
  Sex: Female

DRUGS (2)
  1. TOPAMAX [Suspect]
     Indication: MIGRAINE
     Route: 048
  2. IMITREX [Suspect]
     Indication: MIGRAINE
     Route: 065

REACTIONS (2)
  - Hospitalisation [Recovered/Resolved]
  - Exposure during pregnancy [Recovered/Resolved]
